FAERS Safety Report 6123484-X (Version None)
Quarter: 2009Q1

REPORT INFORMATION
  Report Type: 
  Country: None (occurrence: None)
  Receive Date: 20090318
  Receipt Date: 20090316
  Transmission Date: 20090719
  Serious: Yes (Death, Other)
  Sender: FDA-Public Use
  Company Number: FR-ROXANE LABORATORIES, INC.-2009-RO-00249RO

PATIENT
  Age: 30 Year
  Sex: Female

DRUGS (3)
  1. PREDNISONE TAB [Suspect]
     Indication: SARCOIDOSIS
     Dosage: 40MG
     Route: 048
  2. CYCLOPHOSPHAMIDE [Suspect]
     Indication: SARCOIDOSIS
  3. METHYLPREDNISOLONE 4MG TAB [Suspect]
     Indication: SARCOIDOSIS
     Route: 042

REACTIONS (2)
  - DRUG INEFFECTIVE [None]
  - SYSTEMIC CANDIDA [None]
